FAERS Safety Report 10261722 (Version 2)
Quarter: 2014Q3

REPORT INFORMATION
  Report Type: Spontaneous
  Country: DK (occurrence: FR)
  Receive Date: 20140626
  Receipt Date: 20140716
  Transmission Date: 20150326
  Serious: Yes (Other)
  Sender: FDA-Public Use
  Company Number: FR-FRI-1000068489

PATIENT
  Age: 76 Year
  Sex: Male

DRUGS (1)
  1. ESCITALOPRAM [Suspect]
     Active Substance: ESCITALOPRAM OXALATE
     Dosage: 1 DF
     Route: 048
     Dates: start: 20140227, end: 20140303

REACTIONS (1)
  - Simple partial seizures [Recovered/Resolved]

NARRATIVE: CASE EVENT DATE: 20140303
